FAERS Safety Report 7562223-2 (Version None)
Quarter: 2011Q2

REPORT INFORMATION
  Report Type: 
  Country: None (occurrence: None)
  Receive Date: 20110620
  Receipt Date: 20110620
  Transmission Date: 20111010
  Serious: Yes (Other)
  Sender: FDA-Public Use
  Company Number: None

PATIENT
  Sex: Female
  Weight: 106.5953 kg

DRUGS (1)
  1. GUAIFENESIN [Suspect]
     Indication: COUGH
     Dosage: 1 TSP
     Dates: start: 20110615, end: 20110615

REACTIONS (2)
  - DRUG HYPERSENSITIVITY [None]
  - PRURITUS [None]
